FAERS Safety Report 23985841 (Version 1)
Quarter: 2024Q2

REPORT INFORMATION
  Report Type: Spontaneous
  Country: US (occurrence: US)
  Receive Date: 20240618
  Receipt Date: 20240618
  Transmission Date: 20240716
  Serious: No
  Sender: FDA-Public Use
  Company Number: US-SA-SAC20240614001116

PATIENT
  Age: 50 Year
  Sex: Male
  Weight: 85.7 kg

DRUGS (3)
  1. DUPIXENT [Suspect]
     Active Substance: DUPILUMAB
     Dosage: 300 MG
     Route: 058
  2. TRIAMCINOLONE [Concomitant]
     Active Substance: TRIAMCINOLONE
  3. FLUOCINONIDE [Concomitant]
     Active Substance: FLUOCINONIDE

REACTIONS (2)
  - Eye irritation [Unknown]
  - Intentional product misuse [Unknown]
